FAERS Safety Report 5628590-1 (Version None)
Quarter: 2008Q1

REPORT INFORMATION
  Report Type: 
  Country: None (occurrence: None)
  Receive Date: 20080215
  Receipt Date: 20080206
  Transmission Date: 20080703
  Serious: Yes (Other)
  Sender: FDA-Public Use
  Company Number: US-MERCK-0706USA02067

PATIENT
  Age: 46 Year
  Sex: Female
  Weight: 74 kg

DRUGS (7)
  1. FOSAMAX [Suspect]
     Indication: OSTEOPOROSIS
     Route: 048
     Dates: start: 19950101, end: 20050601
  2. EFFEXOR [Concomitant]
     Route: 065
     Dates: start: 19900101
  3. GABAPENTIN [Concomitant]
     Route: 065
     Dates: start: 19900101
  4. LORAZEPAM [Concomitant]
     Route: 065
     Dates: start: 19900101
  5. ZOLPIDEM TARTRATE [Concomitant]
     Route: 065
     Dates: start: 19900101
  6. METHADONE HYDROCHLORIDE [Concomitant]
     Indication: PAIN MANAGEMENT
     Route: 065
  7. METHADONE HYDROCHLORIDE [Concomitant]
     Indication: SPINAL CORD INJURY
     Route: 065

REACTIONS (15)
  - BACK PAIN [None]
  - CARPAL TUNNEL SYNDROME [None]
  - DENTAL CARIES [None]
  - HYPERCHOLESTEROLAEMIA [None]
  - HYPERGLYCAEMIA [None]
  - HYPERTENSION [None]
  - MOUTH ULCERATION [None]
  - OSTEOARTHRITIS [None]
  - PAIN [None]
  - PIGMENTATION BUCCAL [None]
  - RADIUS FRACTURE [None]
  - RAYNAUD'S PHENOMENON [None]
  - SPINAL COMPRESSION FRACTURE [None]
  - TEMPOROMANDIBULAR JOINT SYNDROME [None]
  - TOOTH LOSS [None]
